FAERS Safety Report 15942061 (Version 3)
Quarter: 2019Q1

REPORT INFORMATION
  Report Type: Spontaneous
  Country: US (occurrence: US)
  Receive Date: 20190209
  Receipt Date: 20190226
  Transmission Date: 20190417
  Serious: Yes (Hospitalization)
  Sender: FDA-Public Use
  Company Number: US-AMGEN-USASP2019016835

PATIENT
  Sex: Female

DRUGS (1)
  1. PROLIA [Suspect]
     Active Substance: DENOSUMAB
     Indication: OSTEOPOROSIS POSTMENOPAUSAL
     Dosage: UNK
     Route: 065
     Dates: start: 201804

REACTIONS (9)
  - Skin infection [Unknown]
  - Eye disorder [Unknown]
  - Feeling abnormal [Unknown]
  - Rash erythematous [Not Recovered/Not Resolved]
  - Pyrexia [Not Recovered/Not Resolved]
  - Cardiac disorder [Unknown]
  - Paraesthesia [Recovering/Resolving]
  - Blister [Recovered/Resolved]
  - Hypertension [Recovering/Resolving]
